FAERS Safety Report 6476830-1 (Version None)
Quarter: 2009Q4

REPORT INFORMATION
  Report Type: 
  Country: None (occurrence: None)
  Receive Date: 20091204
  Receipt Date: 20091204
  Transmission Date: 20100525
  Serious: No
  Sender: FDA-Public Use
  Company Number: None

PATIENT
  Age: 22 Year
  Sex: Female
  Weight: 62.1428 kg

DRUGS (1)
  1. SERTRALINE HCL [Suspect]
     Indication: GENERALISED ANXIETY DISORDER
     Dosage: 25 MG. - 100 MG. QD PO
     Route: 048
     Dates: start: 20091015, end: 20091203

REACTIONS (1)
  - BRUXISM [None]
